FAERS Safety Report 25422153 (Version 1)
Quarter: 2025Q2

REPORT INFORMATION
  Report Type: Other
  Country: FR (occurrence: FR)
  Receive Date: 20250611
  Receipt Date: 20250611
  Transmission Date: 20250717
  Serious: Yes (Death, Hospitalization)
  Sender: ANI
  Company Number: FR-ANIPHARMA-023126

PATIENT
  Age: 84 Year
  Sex: Male

DRUGS (3)
  1. SULFAMETHOXAZOLE\TRIMETHOPRIM [Suspect]
     Active Substance: SULFAMETHOXAZOLE\TRIMETHOPRIM
     Indication: Pneumocystis jirovecii pneumonia
  2. METHYLPREDNISOLONE [Concomitant]
     Active Substance: METHYLPREDNISOLONE
     Indication: Hypersensitivity
  3. METHYLPREDNISOLONE [Concomitant]
     Active Substance: METHYLPREDNISOLONE
     Indication: Pneumocystis jirovecii pneumonia

REACTIONS (1)
  - Drug ineffective [Fatal]
